FAERS Safety Report 20180018 (Version 1)
Quarter: 2021Q4

REPORT INFORMATION
  Report Type: Spontaneous
  Country: US (occurrence: None)
  Receive Date: 20211213
  Receipt Date: 20211213
  Transmission Date: 20220303
  Serious: Yes (Other)
  Sender: FDA-Public Use
  Company Number: None

PATIENT
  Age: 28 Year
  Sex: Female
  Weight: 70.3 kg

DRUGS (2)
  1. BAMLANIVIMAB\ETESEVIMAB [Suspect]
     Active Substance: BAMLANIVIMAB\ETESEVIMAB
     Indication: COVID-19
  2. BAMLANIVIMAB\ETESEVIMAB [Concomitant]
     Active Substance: BAMLANIVIMAB\ETESEVIMAB
     Dates: start: 20211203, end: 20211203

REACTIONS (10)
  - Infusion related reaction [None]
  - Dyspnoea [None]
  - Oropharyngeal discomfort [None]
  - Muscle spasms [None]
  - Muscle tightness [None]
  - Abdominal pain [None]
  - Maternal exposure during delivery [None]
  - Hypertension [None]
  - Tremor [None]
  - Flushing [None]

NARRATIVE: CASE EVENT DATE: 20211203
